FAERS Safety Report 6247240-7 (Version None)
Quarter: 2009Q2

REPORT INFORMATION
  Report Type: 
  Country: None (occurrence: None)
  Receive Date: 20090624
  Receipt Date: 20090624
  Transmission Date: 20091009
  Serious: Yes (Hospitalization)
  Sender: FDA-Public Use
  Company Number: None

PATIENT
  Age: 48 Year
  Sex: Male
  Weight: 108 kg

DRUGS (15)
  1. VANCOMYCIN [Suspect]
     Indication: INFECTION
     Dosage: 1.5-2GRAM DAILY TO Q48H IV
     Route: 042
     Dates: start: 20090325, end: 20090423
  2. HEPARIN [Concomitant]
  3. WARFARIN [Concomitant]
  4. APAP TAB [Concomitant]
  5. CA ACETATE [Concomitant]
  6. CLONIDINE [Concomitant]
  7. DIPHENHYDRAMINE HCL [Concomitant]
  8. HYDRALAZINE HCL [Concomitant]
  9. HYDROMORPHONE [Concomitant]
  10. INSULIN [Concomitant]
  11. LACTOBACILLUS [Concomitant]
  12. LANSOPRAZOLE [Concomitant]
  13. LEVETIRACETAM [Concomitant]
  14. METOPROLOL SUCCINATE [Concomitant]
  15. PSYLLIUM [Concomitant]

REACTIONS (1)
  - RASH [None]
